FAERS Safety Report 8931578 (Version 1)
Quarter: 2012Q4

REPORT INFORMATION
  Report Type: 
  Country: JP (occurrence: JP)
  Receive Date: 20121128
  Receipt Date: 20121128
  Transmission Date: 20130627
  Serious: Yes (Other)
  Sender: FDA-Public Use
  Company Number: JP-WATSON-2012-20089

PATIENT
  Age: 29 Year
  Sex: Male

DRUGS (8)
  1. MYCOPHENOLATE MOFETIL (UNKNOWN) [Suspect]
     Indication: HEART TRANSPLANT
     Dosage: 1000 mg, daily
  2. MYCOPHENOLATE MOFETIL (UNKNOWN) [Interacting]
     Dosage: 500 mg, daily
     Route: 065
  3. TACROLIMUS (UNKNOWN) [Suspect]
     Indication: HEART TRANSPLANT
     Dosage: 4 mg, daily
     Route: 065
  4. TACROLIMUS (UNKNOWN) [Suspect]
     Dosage: 3.5 mg, daily
     Route: 065
  5. TACROLIMUS (UNKNOWN) [Suspect]
     Dosage: 3 mg, daily
     Route: 065
  6. PREDNISOLONE (UNKNOWN) [Suspect]
     Indication: HEART TRANSPLANT
     Dosage: 10 mg, daily
     Route: 065
  7. PREDNISOLONE (UNKNOWN) [Suspect]
     Dosage: 6 mg, daily
     Route: 065
  8. VALGANCICLOVIR [Interacting]
     Indication: CYTOMEGALOVIRUS INFECTION
     Dosage: 450 mg, daily
     Route: 065

REACTIONS (3)
  - Neutropenia [Recovered/Resolved]
  - Drug interaction [Recovered/Resolved]
  - Blood creatinine increased [Recovered/Resolved]
